FAERS Safety Report 18203745 (Version 2)
Quarter: 2020Q4

REPORT INFORMATION
  Report Type: Spontaneous
  Country: US (occurrence: US)
  Receive Date: 20200827
  Receipt Date: 20201110
  Transmission Date: 20210113
  Serious: Yes (Hospitalization, Other)
  Sender: FDA-Public Use
  Company Number: US-UCBSA-2020032841

PATIENT
  Age: 26 Year
  Sex: Male
  Weight: 92.07 kg

DRUGS (7)
  1. LEVETIRACETAM. [Suspect]
     Active Substance: LEVETIRACETAM
     Indication: OFF LABEL USE
     Dosage: 1000 MILLIGRAM, 2X/DAY (BID)
     Route: 042
     Dates: end: 20191204
  2. HALOPERIDOL. [Concomitant]
     Active Substance: HALOPERIDOL
     Indication: AGITATION
     Dosage: UNKNOWN DOSE
     Dates: start: 201911
  3. MIDAZOLAM. [Concomitant]
     Active Substance: MIDAZOLAM
     Dosage: 4 MILLIGRAM
     Route: 030
     Dates: start: 201911
  4. KETAMINE [Concomitant]
     Active Substance: KETAMINE
     Indication: AGITATION
     Dosage: UNKNOWN DOSE
     Dates: start: 201911
  5. MIDAZOLAM. [Concomitant]
     Active Substance: MIDAZOLAM
     Indication: SEIZURE
     Dosage: 10 MILLIGRAM
     Route: 030
     Dates: start: 201911
  6. LEVETIRACETAM. [Suspect]
     Active Substance: LEVETIRACETAM
     Indication: STATUS EPILEPTICUS
     Dosage: 4 GRAM, LOADING DOSE
     Route: 042
     Dates: start: 20191128
  7. LEVETIRACETAM. [Suspect]
     Active Substance: LEVETIRACETAM
     Indication: EPILEPSY
     Dosage: 750 MILLIGRAM, 2X/DAY (BID)

REACTIONS (3)
  - Acute kidney injury [Recovering/Resolving]
  - Product use in unapproved indication [Unknown]
  - Status epilepticus [Recovered/Resolved]

NARRATIVE: CASE EVENT DATE: 2019
